FAERS Safety Report 18575061 (Version 6)
Quarter: 2023Q4

REPORT INFORMATION
  Report Type: Spontaneous
  Country: US (occurrence: US)
  Receive Date: 20201203
  Receipt Date: 20231020
  Transmission Date: 20240109
  Serious: Yes (Other)
  Sender: FDA-Public Use
  Company Number: US-PFIZER INC-2020473637

PATIENT
  Age: 75 Year
  Sex: Female

DRUGS (2)
  1. XELJANZ XR [Suspect]
     Active Substance: TOFACITINIB CITRATE
     Dosage: 11 MG
  2. XELJANZ XR [Suspect]
     Active Substance: TOFACITINIB CITRATE
     Dosage: 11 MG

REACTIONS (8)
  - Road traffic accident [Unknown]
  - Myocardial infarction [Unknown]
  - Choking [Unknown]
  - Drug dependence [Unknown]
  - Mental impairment [Not Recovered/Not Resolved]
  - Asthma [Unknown]
  - Memory impairment [Unknown]
  - Pain in extremity [Unknown]
